FAERS Safety Report 6177171-2 (Version None)
Quarter: 2009Q2

REPORT INFORMATION
  Report Type: 
  Country: None (occurrence: None)
  Receive Date: 20090430
  Receipt Date: 20090430
  Transmission Date: 20091009
  Serious: No
  Sender: FDA-Public Use
  Company Number: None

PATIENT
  Age: 75 Year
  Sex: Female
  Weight: 91.173 kg

DRUGS (2)
  1. NASONEX [Suspect]
     Indication: MULTIPLE ALLERGIES
     Dosage: SPRAY IN NOSTRAL 1 A DAY
     Dates: start: 20090425, end: 20090428
  2. NASONEX [Concomitant]

REACTIONS (3)
  - ABDOMINAL DISCOMFORT [None]
  - DYSGEUSIA [None]
  - UNEVALUABLE EVENT [None]
